FAERS Safety Report 9390863 (Version 1)
Quarter: 2013Q3

REPORT INFORMATION
  Report Type: Spontaneous
  Country: US (occurrence: None)
  Receive Date: 20130705
  Receipt Date: 20130705
  Transmission Date: 20140515
  Serious: No
  Sender: FDA-Public Use
  Company Number: None

PATIENT
  Age: 73 Year
  Sex: Male

DRUGS (2)
  1. TARCEVA 100MG GENENTECH [Suspect]
     Indication: BRONCHIAL CARCINOMA
     Route: 048
     Dates: start: 20130622
  2. TARCEVA 100MG GENENTECH [Suspect]
     Indication: LUNG NEOPLASM MALIGNANT
     Route: 048
     Dates: start: 20130622

REACTIONS (3)
  - Faeces discoloured [None]
  - Defaecation urgency [None]
  - Acne [None]
